FAERS Safety Report 6601569-9 (Version None)
Quarter: 2010Q1

REPORT INFORMATION
  Report Type: 
  Country: None (occurrence: None)
  Receive Date: 20100225
  Receipt Date: 20091218
  Transmission Date: 20100710
  Serious: No
  Sender: FDA-Public Use
  Company Number: US-KINGPHARMUSA00001-K200901585

PATIENT
  Sex: Female

DRUGS (4)
  1. FLECTOR [Suspect]
     Indication: SCIATICA
     Dosage: UNK PATCH, UNK
     Dates: start: 20090101, end: 20090101
  2. FLECTOR [Suspect]
     Indication: PAIN IN EXTREMITY
  3. BUPROPION HCL [Concomitant]
     Dosage: UNK
  4. ANALGESICS [Concomitant]
     Indication: SCIATICA

REACTIONS (1)
  - APPLICATION SITE PAIN [None]
